FAERS Safety Report 5619885-6 (Version None)
Quarter: 2008Q1

REPORT INFORMATION
  Report Type: 
  Country: None (occurrence: None)
  Receive Date: 20080208
  Receipt Date: 20070518
  Transmission Date: 20080703
  Serious: No
  Sender: FDA-Public Use
  Company Number: US-ABBOTT-07P-163-0368687-00

PATIENT
  Age: 33 Year
  Sex: Male

DRUGS (6)
  1. VICODIN [Suspect]
     Indication: PENILE PAIN
     Dates: start: 20060201
  2. VICODIN [Suspect]
     Indication: POLLAKIURIA
  3. FIBER REPLACEMENT [Concomitant]
     Indication: DRUG USE FOR UNKNOWN INDICATION
  4. COLASE [Concomitant]
     Indication: DRUG USE FOR UNKNOWN INDICATION
  5. FENTANYL TRANSDERMAL SYSTEM [Concomitant]
     Indication: DRUG USE FOR UNKNOWN INDICATION
  6. INTERFERON BETA [Concomitant]
     Indication: DRUG USE FOR UNKNOWN INDICATION

REACTIONS (1)
  - CONSTIPATION [None]
